FAERS Safety Report 8700969 (Version 2)
Quarter: 2013Q1

REPORT INFORMATION
  Report Type: Spontaneous
  Country: US (occurrence: US)
  Receive Date: 20120802
  Receipt Date: 20130305
  Transmission Date: 20140127
  Serious: No
  Sender: FDA-Public Use
  Company Number: US-AMGEN-USASP2012045049

PATIENT
  Age: 57 Year
  Sex: Female

DRUGS (3)
  1. ENBREL [Suspect]
     Indication: RHEUMATOID ARTHRITIS
     Dosage: 50 MG, QWK
     Dates: start: 20120228
  2. ORENCIA [Concomitant]
     Dosage: UNK
     Dates: start: 201205, end: 201208
  3. METHOTREXATE [Concomitant]
     Dosage: 10 MG, QWK
     Route: 048

REACTIONS (12)
  - Pain [Not Recovered/Not Resolved]
  - Pruritus [Not Recovered/Not Resolved]
  - Skin exfoliation [Not Recovered/Not Resolved]
  - Fatigue [Unknown]
  - Malaise [Unknown]
  - Arthritis [Not Recovered/Not Resolved]
  - Arthralgia [Unknown]
  - Injection site reaction [Unknown]
  - Injection site pain [Not Recovered/Not Resolved]
  - Injection site swelling [Recovered/Resolved]
  - Injection site erythema [Recovered/Resolved]
  - Oral herpes [Not Recovered/Not Resolved]
